FAERS Safety Report 16611017 (Version 1)
Quarter: 2019Q3

REPORT INFORMATION
  Report Type: Report from Study
  Country: US (occurrence: US)
  Receive Date: 20190722
  Receipt Date: 20190722
  Transmission Date: 20191004
  Serious: Yes (Death, Hospitalization)
  Sender: FDA-Public Use
  Company Number: US-ACTELION-A-NJ2019-188428

PATIENT
  Age: 60 Year
  Sex: Female
  Weight: 91.16 kg

DRUGS (3)
  1. ORENITRAM [Concomitant]
     Active Substance: TREPROSTINIL
  2. TYLENOL EXTRA STRENGTH [Concomitant]
     Active Substance: ACETAMINOPHEN
  3. OPSUMIT [Suspect]
     Active Substance: MACITENTAN
     Indication: PULMONARY ARTERIAL HYPERTENSION
     Dosage: 10 MG, QD
     Route: 048

REACTIONS (5)
  - Headache [Unknown]
  - Dyspnoea exertional [Unknown]
  - Peripheral swelling [Unknown]
  - Cardiac arrest [Fatal]
  - Syncope [Unknown]

NARRATIVE: CASE EVENT DATE: 20190709
